FAERS Safety Report 25846425 (Version 2)
Quarter: 2025Q4

REPORT INFORMATION
  Report Type: Spontaneous
  Country: EU (occurrence: EU)
  Receive Date: 20250925
  Receipt Date: 20251006
  Transmission Date: 20260118
  Serious: Yes (Other)
  Sender: PFIZER
  Company Number: None

PATIENT
  Age: 50 Year
  Sex: Female
  Weight: 78 kg

DRUGS (6)
  1. CARBOPLATIN [Suspect]
     Active Substance: CARBOPLATIN
     Indication: Neoplasm malignant
     Dosage: UNK - C3
     Route: 042
     Dates: start: 2025, end: 20250822
  2. CARBOPLATIN [Suspect]
     Active Substance: CARBOPLATIN
     Indication: Breast cancer
     Dosage: 200 MG, CYCLIC (UNK - C3)
     Route: 042
     Dates: start: 20250709, end: 20250812
  3. PACLITAXEL [Concomitant]
     Active Substance: PACLITAXEL
     Indication: Neoplasm malignant
     Dosage: UNK
     Route: 042
     Dates: start: 2025
  4. PACLITAXEL [Concomitant]
     Active Substance: PACLITAXEL
     Dosage: 144 MG, CYCLIC
     Route: 042
     Dates: start: 20250709
  5. PEMBROLIZUMAB [Concomitant]
     Active Substance: PEMBROLIZUMAB
     Indication: Neoplasm malignant
     Dosage: 1 DF, EVERY 3 WEEKS
     Route: 042
     Dates: start: 2025
  6. PEMBROLIZUMAB [Concomitant]
     Active Substance: PEMBROLIZUMAB
     Dosage: 200 MG, EVERY 3 WEEKS
     Route: 042
     Dates: start: 20250709

REACTIONS (7)
  - Hyperthermia [Recovered/Resolved]
  - Acute respiratory failure [Recovered/Resolved]
  - Mixed liver injury [Recovering/Resolving]
  - Hyperbilirubinaemia [Recovering/Resolving]
  - Vomiting [Recovered/Resolved]
  - Diarrhoea [Recovered/Resolved]
  - Hypersensitivity [Recovering/Resolving]

NARRATIVE: CASE EVENT DATE: 20250601
